FAERS Safety Report 26134303 (Version 1)
Quarter: 2025Q4

REPORT INFORMATION
  Report Type: Spontaneous
  Country: US (occurrence: US)
  Receive Date: 20251209
  Receipt Date: 20251209
  Transmission Date: 20260118
  Serious: No
  Sender: GLENMARK
  Company Number: US-GLENMARK PHARMACEUTICALS-2025GMK103142

PATIENT

DRUGS (1)
  1. ABIRATERONE ACETATE [Suspect]
     Active Substance: ABIRATERONE ACETATE
     Indication: Prostate cancer
     Dosage: 1000 MILLIGRAM, QD, BY MOUTH
     Route: 048
     Dates: start: 20250612, end: 20250808

REACTIONS (4)
  - Paraesthesia [Unknown]
  - Chills [Unknown]
  - Hyperhidrosis [Unknown]
  - Hot flush [Unknown]
